FAERS Safety Report 16746329 (Version 1)
Quarter: 2019Q3

REPORT INFORMATION
  Report Type: Spontaneous
  Country: BE (occurrence: BE)
  Receive Date: 20190827
  Receipt Date: 20190827
  Transmission Date: 20191005
  Serious: Yes (Hospitalization)
  Sender: FDA-Public Use
  Company Number: BE-ELI_LILLY_AND_COMPANY-BE201908010431

PATIENT
  Age: 58 Year
  Sex: Female

DRUGS (4)
  1. TERIPARATIDE [Suspect]
     Active Substance: TERIPARATIDE
     Indication: FRACTURE NONUNION
     Dosage: UNK UNK, DAILY
     Route: 065
     Dates: start: 2013
  2. RISEDRONIC ACID [Suspect]
     Active Substance: RISEDRONIC ACID
     Indication: OSTEOPOROSIS
     Route: 065
     Dates: start: 1993, end: 2013
  3. CALCIUM + VITAMIN D [CALCIUM LACTATE;CALCIUM [Concomitant]
     Indication: NUTRITIONAL SUPPLEMENTATION
     Dosage: UNK UNK, DAILY
     Route: 065
  4. METHYLPREDNISOLONE. [Suspect]
     Active Substance: METHYLPREDNISOLONE
     Indication: ASTHMA
     Dosage: 16 MILLIGRAM DAILY;
     Route: 065

REACTIONS (4)
  - Atypical femur fracture [Recovered/Resolved]
  - Fracture nonunion [Recovered/Resolved]
  - Off label use [Unknown]
  - Atypical fracture [Recovered/Resolved]
